FAERS Safety Report 5714533-9 (Version None)
Quarter: 2008Q2

REPORT INFORMATION
  Report Type: 
  Country: None (occurrence: None)
  Receive Date: 20080423
  Receipt Date: 20080417
  Transmission Date: 20081010
  Serious: Yes (Hospitalization)
  Sender: FDA-Public Use
  Company Number: DE-JNJFOC-20080404683

PATIENT
  Age: 62 Year
  Sex: Female

DRUGS (4)
  1. RISPERDAL [Suspect]
     Indication: DRUG USE FOR UNKNOWN INDICATION
     Dosage: 1-0-1
     Route: 048
  2. MELPERON [Interacting]
     Indication: DRUG USE FOR UNKNOWN INDICATION
     Dosage: 1-1-1
     Route: 065
  3. MEMANTINE HCL [Concomitant]
     Route: 065
  4. ARICEPT [Concomitant]
     Route: 065

REACTIONS (3)
  - DRUG INTERACTION [None]
  - DYSTONIA [None]
  - PLEUROTHOTONUS [None]
